FAERS Safety Report 6909648-3 (Version None)
Quarter: 2010Q3

REPORT INFORMATION
  Report Type: 
  Country: None (occurrence: None)
  Receive Date: 20100805
  Receipt Date: 20100726
  Transmission Date: 20110219
  Serious: Yes (Hospitalization, Disabling, Other)
  Sender: FDA-Public Use
  Company Number: US-ABBOTT-10P-163-0626542-00

PATIENT
  Sex: Female
  Weight: 95.34 kg

DRUGS (16)
  1. TRICOR [Suspect]
     Indication: TYPE 2 DIABETES MELLITUS
     Dates: start: 20091215, end: 20100203
  2. ATACAND [Concomitant]
     Indication: RENAL DISORDER
  3. ATENOLOL [Concomitant]
     Indication: RENAL DISORDER
  4. ALLOPURINOL [Concomitant]
     Indication: NEPHROLITHIASIS
  5. MIRAPEX [Concomitant]
     Indication: PERIODIC LIMB MOVEMENT DISORDER
  6. CLONAZEPAM [Concomitant]
     Indication: PERIODIC LIMB MOVEMENT DISORDER
  7. SINGULAIR [Concomitant]
     Indication: ASTHMA
  8. ALBUTEROL [Concomitant]
     Indication: ASTHMA
  9. EFFEXOR [Concomitant]
     Indication: DEPRESSION
  10. SYNTHROID [Concomitant]
     Indication: HYPOTHYROIDISM
  11. METFORMIN HCL [Concomitant]
     Indication: TYPE 2 DIABETES MELLITUS
  12. PROVIGIL [Concomitant]
     Indication: PSYCHOMOTOR RETARDATION
  13. VITAMIN B-12 [Concomitant]
     Indication: VITAMIN SUPPLEMENTATION
  14. FOLIC ACID [Concomitant]
     Indication: FOLATE DEFICIENCY
  15. B 1 [Concomitant]
     Indication: VITAMIN SUPPLEMENTATION
  16. PREDNISONE [Concomitant]
     Indication: PRODUCT USED FOR UNKNOWN INDICATION
     Dates: start: 20100209

REACTIONS (31)
  - ASTHENIA [None]
  - BLOOD ALBUMIN DECREASED [None]
  - BLOOD CHOLESTEROL INCREASED [None]
  - BLOOD CREATININE INCREASED [None]
  - BLOOD POTASSIUM INCREASED [None]
  - BLOOD TRIGLYCERIDES INCREASED [None]
  - BLOOD URINE PRESENT [None]
  - CHEST DISCOMFORT [None]
  - CHEST PAIN [None]
  - COORDINATION ABNORMAL [None]
  - DYSPNOEA [None]
  - FATIGUE [None]
  - GLOMERULAR FILTRATION RATE DECREASED [None]
  - GLOMERULONEPHRITIS MEMBRANOUS [None]
  - HAND DEFORMITY [None]
  - IMMUNE SYSTEM DISORDER [None]
  - JOINT SWELLING [None]
  - LOW DENSITY LIPOPROTEIN INCREASED [None]
  - MOTOR DYSFUNCTION [None]
  - MYALGIA [None]
  - MYOPATHY [None]
  - OEDEMA PERIPHERAL [None]
  - PAIN [None]
  - PROTEIN TOTAL INCREASED [None]
  - PROTEIN URINE PRESENT [None]
  - PROTEINURIA [None]
  - SKIN DISCOLOURATION [None]
  - SWELLING [None]
  - URINE PROTEIN/CREATININE RATIO INCREASED [None]
  - VOMITING [None]
  - WHITE BLOOD CELL COUNT INCREASED [None]
